FAERS Safety Report 4955854-7 (Version None)
Quarter: 2006Q1

REPORT INFORMATION
  Report Type: 
  Country: None (occurrence: None)
  Receive Date: 20060327
  Receipt Date: 20060327
  Transmission Date: 20060701
  Serious: No
  Sender: FDA-Public Use
  Company Number: None

PATIENT
  Sex: Female
  Weight: 68.0396 kg

DRUGS (2)
  1. FOSAMAX [Suspect]
     Indication: OSTEOPENIA
     Dosage: 1 TABLET ONCE PER WEEK PO
     Route: 048
     Dates: start: 20030901, end: 20050901
  2. BONIVA [Suspect]
     Dosage: 1 TABLET ONCE PER MONTH PO
     Route: 048
     Dates: start: 20050901, end: 20060301

REACTIONS (8)
  - ARTHRALGIA [None]
  - BACK PAIN [None]
  - DISCOMFORT [None]
  - FATIGUE [None]
  - HYPOAESTHESIA [None]
  - PYREXIA [None]
  - SHOULDER PAIN [None]
  - WEIGHT INCREASED [None]
